FAERS Safety Report 26087810 (Version 1)
Quarter: 2025Q4

REPORT INFORMATION
  Report Type: Spontaneous
  Country: GB (occurrence: GB)
  Receive Date: 20251125
  Receipt Date: 20251125
  Transmission Date: 20260118
  Serious: Yes (Other)
  Sender: Haleon PLC
  Company Number: None

PATIENT
  Age: 62 Year
  Sex: Female
  Weight: 78 kg

DRUGS (11)
  1. ACETAMINOPHEN [Suspect]
     Active Substance: ACETAMINOPHEN
     Indication: Product used for unknown indication
  2. ONDANSETRON [Suspect]
     Active Substance: ONDANSETRON
     Indication: Product used for unknown indication
  3. REMIFENTANIL [Suspect]
     Active Substance: REMIFENTANIL
     Indication: General anaesthesia
  4. MIDAZOLAM [Suspect]
     Active Substance: MIDAZOLAM
     Indication: Anxiety
  5. SUGAMMADEX [Suspect]
     Active Substance: SUGAMMADEX
     Indication: Product used for unknown indication
  6. PROPOFOL [Suspect]
     Active Substance: PROPOFOL
     Indication: General anaesthesia
  7. OXYCODONE [Suspect]
     Active Substance: OXYCODONE
     Indication: General anaesthesia
  8. IBUPROFEN [Suspect]
     Active Substance: IBUPROFEN
     Indication: Product used for unknown indication
  9. LIDOCAINE HYDROCHLORIDE [Suspect]
     Active Substance: LIDOCAINE HYDROCHLORIDE
     Indication: Product used for unknown indication
  10. ROCURONIUM [Suspect]
     Active Substance: ROCURONIUM BROMIDE
     Indication: Product used for unknown indication
  11. DEXAMETHASONE\NEOMYCIN\POLYMYXIN B [Suspect]
     Active Substance: DEXAMETHASONE\NEOMYCIN\POLYMYXIN B
     Indication: Product used for unknown indication
     Dosage: ONE PACK FOR EACH NOSTRIL ,REMOVED ONNCE NOTED RASH IN RECOVERY

REACTIONS (3)
  - Rash pruritic [Recovering/Resolving]
  - Drug interaction [Unknown]
  - Pallor [Unknown]

NARRATIVE: CASE EVENT DATE: 20251118
